FAERS Safety Report 25596928 (Version 1)
Quarter: 2025Q3

REPORT INFORMATION
  Report Type: Spontaneous
  Country: US (occurrence: US)
  Receive Date: 20250723
  Receipt Date: 20250723
  Transmission Date: 20251020
  Serious: No
  Sender: DR REDDYS
  Company Number: None

PATIENT
  Age: 63 Year
  Sex: Female

DRUGS (5)
  1. DOXORUBICIN [Suspect]
     Active Substance: DOXORUBICIN
     Indication: Extra-osseous Ewing^s sarcoma
     Dosage: START DATE: MAR-2024
  2. CYCLOPHOSPHAMIDE [Suspect]
     Active Substance: CYCLOPHOSPHAMIDE
     Indication: Extra-osseous Ewing^s sarcoma
     Dosage: START DATE: MAR-2024
  3. VINCRISTINE [Suspect]
     Active Substance: VINCRISTINE
     Indication: Extra-osseous Ewing^s sarcoma
     Dosage: START DATE: MAR-2024
  4. IFOSFAMIDE [Suspect]
     Active Substance: IFOSFAMIDE
     Indication: Extra-osseous Ewing^s sarcoma
     Dosage: START DATE: MAR-2024
  5. ETOPOSIDE [Suspect]
     Active Substance: ETOPOSIDE
     Indication: Extra-osseous Ewing^s sarcoma
     Dosage: START DATE: MAR-2024

REACTIONS (1)
  - Toxicity to various agents [Unknown]

NARRATIVE: CASE EVENT DATE: 20240101
